FAERS Safety Report 9633657 (Version 2)
Quarter: 2013Q4

REPORT INFORMATION
  Report Type: Spontaneous
  Country: US (occurrence: US)
  Receive Date: 20131021
  Receipt Date: 20131021
  Transmission Date: 20140711
  Serious: No
  Sender: FDA-Public Use
  Company Number: US-PFIZER INC-2013239157

PATIENT
  Age: 34 Year
  Sex: Female

DRUGS (6)
  1. LYRICA [Suspect]
     Dosage: 100 MG, 2X/DAY
  2. TRAMADOL [Concomitant]
     Dosage: UNK
  3. SERTRALINE [Concomitant]
     Dosage: UNK
  4. FEXOFENADINE [Concomitant]
     Dosage: UNK
  5. VENTOLIN [Concomitant]
     Dosage: UNK
  6. DICYCLOMINE [Concomitant]
     Indication: FIBROMYALGIA
     Dosage: UNK

REACTIONS (1)
  - Anxiety [Unknown]
